FAERS Safety Report 9278427 (Version 1)
Quarter: 2013Q2

REPORT INFORMATION
  Report Type: Report from Study
  Country: DE (occurrence: DE)
  Receive Date: 20130508
  Receipt Date: 20130508
  Transmission Date: 20140414
  Serious: Yes (Hospitalization)
  Sender: FDA-Public Use
  Company Number: DE-INCYTE CORPORATION-2012IN000065

PATIENT
  Sex: 0

DRUGS (6)
  1. INC424 [Suspect]
     Indication: MYELOFIBROSIS
     Dosage: 20 MG, BID
     Route: 048
     Dates: start: 20111122
  2. DIGIMERCK [Concomitant]
  3. NOVORAPID [Concomitant]
  4. ENALAPRIL [Concomitant]
  5. UNAT [Concomitant]
  6. BELOC ZOC MITE [Concomitant]

REACTIONS (1)
  - Vestibular neuronitis [Recovered/Resolved]
